FAERS Safety Report 24646837 (Version 1)
Quarter: 2024Q4

REPORT INFORMATION
  Report Type: Spontaneous
  Country: US (occurrence: None)
  Receive Date: 20241120
  Receipt Date: 20241120
  Transmission Date: 20250115
  Serious: Yes (Death)
  Sender: Public
  Company Number: None

PATIENT
  Age: 76 Year
  Sex: Male

DRUGS (1)
  1. POMALYST [Suspect]
     Active Substance: POMALIDOMIDE
     Indication: Plasma cell leukaemia
     Dosage: 4MG QD ORAL
     Route: 048
     Dates: start: 20201217, end: 20240920

REACTIONS (1)
  - Hospice care [None]

NARRATIVE: CASE EVENT DATE: 20240920
